FAERS Safety Report 19953716 (Version 1)
Quarter: 2021Q4

REPORT INFORMATION
  Report Type: Spontaneous
  Country: US (occurrence: US)
  Receive Date: 20211013
  Receipt Date: 20211013
  Transmission Date: 20220303
  Serious: No
  Sender: FDA-Public Use
  Company Number: US-PFIZER INC-2021494480

PATIENT
  Sex: Male

DRUGS (5)
  1. DOXORUBICIN HYDROCHLORIDE [Suspect]
     Active Substance: DOXORUBICIN HYDROCHLORIDE
     Indication: Cutaneous T-cell lymphoma
     Dosage: UNK, CYCLIC
  2. BRENTUXIMAB VEDOTIN [Suspect]
     Active Substance: BRENTUXIMAB VEDOTIN
     Dosage: UNK UNK, CYCLIC
  3. CYCLOPHOSPHAMIDE [Suspect]
     Active Substance: CYCLOPHOSPHAMIDE
     Dosage: UNK UNK, CYCLIC
  4. PREDNISONE [Suspect]
     Active Substance: PREDNISONE
     Dosage: UNK UNK, CYCLIC
  5. OLANZAPINE [Suspect]
     Active Substance: OLANZAPINE
     Dosage: UNK UNK, CYCLIC
     Route: 048

REACTIONS (2)
  - Lymphadenopathy [Unknown]
  - Erythema [Unknown]
